FAERS Safety Report 8858453 (Version 4)
Quarter: 2013Q1

REPORT INFORMATION
  Report Type: Spontaneous
  Country: GB (occurrence: GB)
  Receive Date: 20121025
  Receipt Date: 20130329
  Transmission Date: 20140127
  Serious: Yes (Hospitalization)
  Sender: FDA-Public Use
  Company Number: GB-US-EMD SERONO, INC.-7168360

PATIENT
  Sex: Male

DRUGS (4)
  1. SAIZEN [Suspect]
     Indication: PRODUCT USED FOR UNKNOWN INDICATION
     Route: 058
     Dates: start: 20090616
  2. HYDROCORTISONE [Concomitant]
     Indication: HYPOPITUITARISM
     Route: 048
  3. LEVOTHYROXINE [Concomitant]
     Indication: HYPOPITUITARISM
  4. CETRIZINE [Concomitant]
     Indication: PRODUCT USED FOR UNKNOWN INDICATION

REACTIONS (2)
  - Pituitary tumour [Not Recovered/Not Resolved]
  - Prostatic specific antigen increased [Unknown]
